FAERS Safety Report 7148089-3 (Version None)
Quarter: 2010Q4

REPORT INFORMATION
  Report Type: 
  Country: None (occurrence: None)
  Receive Date: 20101209
  Receipt Date: 20101201
  Transmission Date: 20110411
  Serious: Yes (Other)
  Sender: FDA-Public Use
  Company Number: ES-JNJFOC-20101201342

PATIENT
  Age: 75 Year
  Sex: Male

DRUGS (6)
  1. TAVANIC [Suspect]
     Indication: RESPIRATORY TRACT INFECTION
     Route: 048
  2. OMEPRAZOLE [Concomitant]
     Dosage: 1-0-0
     Route: 065
  3. SERETIDE [Concomitant]
     Dosage: 1-0-1
     Route: 065
  4. ATROVENT [Concomitant]
     Route: 065
  5. LOGIMAX [Concomitant]
     Dosage: 1-0-0
     Route: 065
  6. NOVONORM [Concomitant]
     Dosage: 1-0-0
     Route: 065

REACTIONS (3)
  - JOINT SWELLING [None]
  - PYREXIA [None]
  - SYNOVITIS [None]
